FAERS Safety Report 9720573 (Version 1)
Quarter: 2013Q4

REPORT INFORMATION
  Report Type: Spontaneous
  Country: GB (occurrence: GB)
  Receive Date: 20131129
  Receipt Date: 20131129
  Transmission Date: 20140711
  Serious: Yes (Other)
  Sender: FDA-Public Use
  Company Number: GB-AMGEN-GBRSP2013084332

PATIENT
  Age: 24 Year
  Sex: Male
  Weight: 80.5 kg

DRUGS (21)
  1. NEULASTA [Suspect]
     Indication: PROPHYLAXIS
     Dosage: 6 MG, ONE TIME DOSE
     Route: 058
     Dates: start: 20131115, end: 20131115
  2. ACTINOMYCIN D [Concomitant]
     Dosage: UNK
  3. APREPITANT [Concomitant]
     Dosage: UNK
  4. CYCLIZINE [Concomitant]
     Dosage: UNK
  5. DEXAMETHASONE [Concomitant]
     Dosage: UNK
  6. DOMPERIDONE [Concomitant]
     Dosage: UNK
  7. ENOXAPARIN [Concomitant]
     Dosage: UNK
  8. HYOSCINE BUTYLBROMIDE [Concomitant]
     Dosage: UNK
  9. IFOSFAMIDE [Concomitant]
     Dosage: UNK
  10. LACTULOSE [Concomitant]
     Dosage: UNK
  11. LANSOPRAZOLE [Concomitant]
     Dosage: UNK
  12. LEVOMEPROMAZINE [Concomitant]
     Dosage: UNK
  13. MESNA [Concomitant]
     Dosage: UNK
  14. ONDANSETRON [Concomitant]
     Dosage: UNK
  15. OXYCONTIN [Concomitant]
     Dosage: UNK
  16. OXYNORM [Concomitant]
     Dosage: UNK
  17. PARACETAMOL [Concomitant]
     Dosage: UNK
  18. PREGABALIN [Concomitant]
     Dosage: UNK
  19. SENNA                              /00142201/ [Concomitant]
     Dosage: UNK
  20. VINCRISTINE [Concomitant]
     Indication: EWING^S SARCOMA
     Dosage: UNK
  21. ZOPICLONE [Concomitant]
     Dosage: UNK

REACTIONS (4)
  - Presyncope [Recovered/Resolved]
  - Dyspnoea [Recovered/Resolved]
  - Flushing [Recovered/Resolved]
  - Heart rate increased [Recovered/Resolved]
